FAERS Safety Report 22383692 (Version 1)
Quarter: 2023Q2

REPORT INFORMATION
  Report Type: Spontaneous
  Country: BR (occurrence: BR)
  Receive Date: 20230530
  Receipt Date: 20230530
  Transmission Date: 20230721
  Serious: Yes (Other)
  Sender: FDA-Public Use
  Company Number: BR-SUN PHARMACEUTICAL INDUSTRIES LTD-2023R1-389447

PATIENT
  Age: 61 Year
  Sex: Female

DRUGS (2)
  1. PREDNISONE [Suspect]
     Active Substance: PREDNISONE
     Indication: Nodule
     Dosage: 40 MILLIGRAM
     Route: 065
  2. LEVOCETIRIZINE [Suspect]
     Active Substance: LEVOCETIRIZINE
     Indication: Nodule
     Dosage: 5 MILLIGRAM, DAILY
     Route: 065

REACTIONS (1)
  - Therapy partial responder [Unknown]
